FAERS Safety Report 5073193-3 (Version None)
Quarter: 2006Q3

REPORT INFORMATION
  Report Type: 
  Country: None (occurrence: None)
  Receive Date: 20060711
  Receipt Date: 20060324
  Transmission Date: 20061208
  Serious: No
  Sender: FDA-Public Use
  Company Number: 2006S1000065

PATIENT
  Age: 28 Year
  Sex: Female

DRUGS (3)
  1. CUBICIN [Suspect]
     Indication: DEVICE RELATED INFECTION
     Dosage: 500 MG; Q24HY; IV
     Route: 042
     Dates: start: 20060308
  2. CUBICIN [Suspect]
     Indication: WOUND INFECTION
     Dosage: 500 MG; Q24HY; IV
     Route: 042
     Dates: start: 20060308
  3. VENLAFAXINE HCL [Concomitant]

REACTIONS (1)
  - OLIGOMENORRHOEA [None]
